FAERS Safety Report 18758507 (Version 2)
Quarter: 2021Q1

REPORT INFORMATION
  Report Type: Spontaneous
  Country: US (occurrence: US)
  Receive Date: 20210120
  Receipt Date: 20210129
  Transmission Date: 20210419
  Serious: Yes (Hospitalization, Other)
  Sender: FDA-Public Use
  Company Number: US-AUROBINDO-AUR-APL-2021-001981

PATIENT
  Age: 82 Year
  Sex: Male

DRUGS (2)
  1. IPRATROPIUM BROMIDE. [Suspect]
     Active Substance: IPRATROPIUM BROMIDE
     Indication: PRODUCT USED FOR UNKNOWN INDICATION
     Dosage: 20 MICROGRAM, INHALER TWO TO THREE TIMES DAILY
  2. IMMUNE GLOBULIN (IMMUNOGLOBULINS NOS) [Suspect]
     Active Substance: IMMUNE GLOBULIN NOS
     Indication: PRODUCT USED FOR UNKNOWN INDICATION
     Dosage: EVERY FOUR WEEKS
     Route: 042

REACTIONS (5)
  - Gait disturbance [Unknown]
  - Fall [Unknown]
  - Hallucination, visual [Unknown]
  - Toxicity to various agents [Unknown]
  - Cognitive disorder [Unknown]
